FAERS Safety Report 6943676-7 (Version None)
Quarter: 2010Q3

REPORT INFORMATION
  Report Type: 
  Country: None (occurrence: None)
  Receive Date: 20100826
  Receipt Date: 20100818
  Transmission Date: 20110219
  Serious: Yes (Hospitalization)
  Sender: FDA-Public Use
  Company Number: IL-GENENTECH-305554

PATIENT
  Age: 86 Year
  Sex: Female

DRUGS (10)
  1. RANIBIZUMAB [Suspect]
     Indication: CHOROIDAL NEOVASCULARISATION
     Dosage: UNK
     Dates: start: 20090511
  2. RANIBIZUMAB [Suspect]
     Indication: MACULAR DEGENERATION
  3. ALENDRONATE SODIUM [Concomitant]
     Indication: OSTEOPOROSIS
     Dosage: UNK
     Dates: end: 19990101
  4. PAROXETINE HCL [Concomitant]
     Indication: ANXIETY
     Dosage: UNK
     Dates: start: 20010101
  5. CALTRATE [Concomitant]
     Indication: OSTEOPOROSIS
     Dosage: UNK
     Dates: start: 20030101
  6. ATENOLOL [Concomitant]
     Indication: HYPERTENSION
     Dosage: UNK
     Dates: start: 20050101
  7. LANSOPRAZOLE [Concomitant]
     Indication: OESOPHAGITIS
  8. SIMVASTATIN [Concomitant]
     Indication: HYPERLIPIDAEMIA
  9. MEDICATION (UNK INGREDIENT) [Concomitant]
     Indication: GASTRITIS
     Dosage: UNK
     Dates: start: 20050101
  10. CINNARIZINE [Concomitant]
     Indication: DIZZINESS

REACTIONS (1)
  - CEREBRAL INFARCTION [None]
